FAERS Safety Report 19511056 (Version 4)
Quarter: 2022Q3

REPORT INFORMATION
  Report Type: Report from Study
  Country: US (occurrence: US)
  Receive Date: 20210709
  Receipt Date: 20220927
  Transmission Date: 20221027
  Serious: Yes (Hospitalization, Other)
  Sender: FDA-Public Use
  Company Number: NVSC2021US145201

PATIENT
  Sex: Female

DRUGS (1)
  1. ENTRESTO [Suspect]
     Active Substance: SACUBITRIL\VALSARTAN
     Indication: Product used for unknown indication
     Dosage: 1 DOSAGE FORM, BID (49/51 MG)
     Route: 048
     Dates: start: 20210618

REACTIONS (7)
  - Myocardial infarction [Recovering/Resolving]
  - Spleen disorder [Recovering/Resolving]
  - Fatigue [Recovering/Resolving]
  - Feeding disorder [Unknown]
  - Asthenia [Unknown]
  - Nausea [Unknown]
  - Ejection fraction decreased [Unknown]
